FAERS Safety Report 4474811-0 (Version None)
Quarter: 2004Q4

REPORT INFORMATION
  Report Type: 
  Country: None (occurrence: None)
  Receive Date: 20041012
  Receipt Date: 20040928
  Transmission Date: 20050328
  Serious: Yes (Disabling)
  Sender: FDA-Public Use
  Company Number: 2004-09-1887

PATIENT
  Sex: Male

DRUGS (2)
  1. CLARINEX [Suspect]
     Indication: HYPERSENSITIVITY
     Dosage: 5 MG QD ORAL
     Route: 048
  2. ASPIRIN [Concomitant]

REACTIONS (2)
  - DIFFICULTY IN WALKING [None]
  - SENSATION OF HEAVINESS [None]
